FAERS Safety Report 9122120 (Version 1)
Quarter: 2013Q1

REPORT INFORMATION
  Report Type: Spontaneous
  Country: FR (occurrence: FR)
  Receive Date: 20130114
  Receipt Date: 20130114
  Transmission Date: 20140127
  Serious: Yes (Hospitalization)
  Sender: FDA-Public Use
  Company Number: PHHY2013FR002766

PATIENT
  Sex: Female

DRUGS (1)
  1. EXELON PATCH [Suspect]
     Dosage: 9.5 MG DAILY
     Route: 062

REACTIONS (3)
  - Infection [Not Recovered/Not Resolved]
  - Pyrexia [Recovered/Resolved]
  - Lung disorder [Unknown]
